FAERS Safety Report 9797782 (Version 4)
Quarter: 2014Q1

REPORT INFORMATION
  Report Type: Spontaneous
  Country: DE (occurrence: None)
  Receive Date: 20131231
  Receipt Date: 20140214
  Transmission Date: 20141002
  Serious: Yes (Death, Other)
  Sender: FDA-Public Use
  Company Number: BTG00099

PATIENT
  Age: 33 Year
  Sex: Female
  Weight: 105.8 kg

DRUGS (18)
  1. VORAXAZE [Suspect]
     Indication: PRODUCT USED FOR UNKNOWN INDICATION
     Route: 042
     Dates: start: 20131216, end: 20131216
  2. METHOTREXATE (METHOTREXATE SODIUM) [Suspect]
     Indication: CENTRAL NERVOUS SYSTEM LYMPHOMA
     Route: 042
     Dates: start: 20131213
  3. RITUXIMAB (RITUXIMAB) [Suspect]
     Indication: PRODUCT USED FOR UNKNOWN INDICATION
     Dates: start: 20131213
  4. ARA-C (CYTARABINE) [Suspect]
     Indication: CENTRAL NERVOUS SYSTEM LYMPHOMA
     Route: 042
     Dates: start: 20131214, end: 20131214
  5. PANTOPRAZOLE (PANTOPRAZOLE SODIUM SESQULHYDRATE) [Suspect]
     Indication: PRODUCT USED FOR UNKNOWN INDICATION
     Route: 048
     Dates: start: 201311
  6. FENISTIL-RETARD (DIMETINDENE MALEATE) [Suspect]
     Indication: PRODUCT USED FOR UNKNOWN INDICATION
     Route: 048
     Dates: start: 201311
  7. CETIRIZIN (CETIRIZINE HYDROCHLORIDE) [Suspect]
     Indication: PRODUCT USED FOR UNKNOWN INDICATION
     Route: 048
     Dates: start: 201311
  8. METRONIDAZOL (METRONIDAZOLE) [Suspect]
     Indication: CLOSTRIDIUM DIFFICILE INFECTION
     Route: 048
     Dates: start: 20131215
  9. PIPERACILLIN/TAZOBACTAM (PIPERACILLIN SODIUM, TAZOBACTAM SODIUM) [Suspect]
     Indication: RESPIRATORY TRACT INFECTION
     Route: 042
     Dates: start: 20131214, end: 20131216
  10. MEROPENEM (MEROPENEM TRIHYDRATE) [Suspect]
     Indication: INFECTION
     Route: 042
     Dates: start: 20131216
  11. AMPHOTERICIN B [Suspect]
     Indication: PRODUCT USED FOR UNKNOWN INDICATION
     Dates: start: 20131213
  12. CHLORHEXIDIN (CHLORHEXIDINE GLUCONATE) MOUTHWASH [Suspect]
     Indication: PRODUCT USED FOR UNKNOWN INDICATION
     Dosage: 6X DAILY
     Dates: start: 20131213
  13. LEUCOVORIN (CALCIUM FOLINATE) [Suspect]
     Indication: FOLATE DEFICIENCY
     Route: 042
     Dates: start: 20131214
  14. FUROSEMID (FUROSEMIDE) [Suspect]
     Indication: PRODUCT USED FOR UNKNOWN INDICATION
     Route: 042
     Dates: start: 20131215
  15. HEPARIN (HEPARIN SODIUM) [Suspect]
     Indication: THROMBOSIS
     Dosage: 24000 IE
     Route: 042
     Dates: start: 20131216
  16. PARACETAMOL (PARACETAMOL) [Suspect]
     Indication: PYREXIA
     Route: 048
  17. METOCLOPRAMID (METOCLOPRAMIDE HYDROCHLORIDE) [Suspect]
     Indication: NAUSEA
     Dosage: SINGLE
     Dates: start: 20131216
  18. METAMIZOL (METAMIZOLE SODIUM) [Suspect]
     Indication: PYREXIA
     Dosage: SINGLE
     Route: 048
     Dates: start: 20131216

REACTIONS (10)
  - Cardiac arrest [None]
  - Hypokalaemia [None]
  - Renal failure [None]
  - Deep vein thrombosis [None]
  - Arrhythmia [None]
  - Glomerular filtration rate decreased [None]
  - Activated partial thromboplastin time prolonged [None]
  - Loss of consciousness [None]
  - Pulmonary embolism [None]
  - Underdose [None]
